FAERS Safety Report 25477169 (Version 1)
Quarter: 2025Q2

REPORT INFORMATION
  Report Type: Spontaneous
  Country: JP (occurrence: JP)
  Receive Date: 20250625
  Receipt Date: 20250625
  Transmission Date: 20250716
  Serious: Yes (Hospitalization, Other)
  Sender: AMNEAL
  Company Number: JP-AMNEAL PHARMACEUTICALS-2025-AMRX-02381

PATIENT
  Age: 66 Year
  Sex: Female

DRUGS (8)
  1. ONGENTYS [Suspect]
     Active Substance: OPICAPONE
     Indication: Parkinson^s disease
     Route: 048
  2. ONGENTYS [Suspect]
     Active Substance: OPICAPONE
     Route: 048
     Dates: start: 20250523, end: 20250523
  3. ONGENTYS [Suspect]
     Active Substance: OPICAPONE
     Route: 048
     Dates: start: 20250524, end: 20250526
  4. ONGENTYS [Suspect]
     Active Substance: OPICAPONE
     Route: 048
     Dates: start: 20250607
  5. RASAGILINE MESYLATE [Concomitant]
     Active Substance: RASAGILINE MESYLATE
     Indication: Product used for unknown indication
     Route: 065
     Dates: start: 20250523, end: 20250526
  6. CARBIDOPA\LEVODOPA [Concomitant]
     Active Substance: CARBIDOPA\LEVODOPA
     Indication: Neuroleptic malignant syndrome
     Route: 065
     Dates: start: 20250523, end: 20250523
  7. CARBIDOPA\LEVODOPA [Concomitant]
     Active Substance: CARBIDOPA\LEVODOPA
     Route: 065
     Dates: start: 20250529
  8. CARBIDOPA\LEVODOPA [Concomitant]
     Active Substance: CARBIDOPA\LEVODOPA
     Route: 065
     Dates: start: 20250610

REACTIONS (13)
  - Depressed level of consciousness [Unknown]
  - Cardiac failure [Unknown]
  - Overdose [Unknown]
  - Dyspnoea [Unknown]
  - Tachycardia [Unknown]
  - Oxygen saturation decreased [Unknown]
  - Pyrexia [Unknown]
  - Wheezing [Unknown]
  - Muscle rigidity [Unknown]
  - Tremor [Unknown]
  - Parkinsonism [Unknown]
  - Agitation [Unknown]
  - Dyskinesia [Unknown]

NARRATIVE: CASE EVENT DATE: 20250523
